APPROVED DRUG PRODUCT: FACTIVE
Active Ingredient: GEMIFLOXACIN MESYLATE
Strength: EQ 320MG BASE **Federal Register determination that product was not discontinued or withdrawn for safety or effectiveness reasons**
Dosage Form/Route: TABLET;ORAL
Application: N021158 | Product #001
Applicant: LG CHEM LTD
Approved: Apr 4, 2003 | RLD: Yes | RS: No | Type: DISCN